FAERS Safety Report 8176687-7 (Version None)
Quarter: 2012Q1

REPORT INFORMATION
  Report Type: 
  Country: None (occurrence: None)
  Receive Date: 20120301
  Receipt Date: 20120222
  Transmission Date: 20120608
  Serious: Yes (Other)
  Sender: FDA-Public Use
  Company Number: US-SANOFI-AVENTIS-2012SA012146

PATIENT
  Age: 3 Year
  Sex: Male

DRUGS (1)
  1. LOVENOX [Suspect]
     Dates: start: 20090101

REACTIONS (2)
  - FOETAL EXPOSURE TIMING UNSPECIFIED [None]
  - CARDIAC VALVE DISEASE [None]
